FAERS Safety Report 9554599 (Version 1)
Quarter: 2013Q3

REPORT INFORMATION
  Report Type: Spontaneous
  Country: AU (occurrence: AU)
  Receive Date: 20130925
  Receipt Date: 20130925
  Transmission Date: 20140515
  Serious: Yes (Other)
  Sender: FDA-Public Use
  Company Number: AU-MYLANLABS-2013S1020936

PATIENT
  Age: 73 Year
  Sex: Male

DRUGS (10)
  1. PHENYTOIN [Suspect]
     Indication: VENTRICULAR TACHYCARDIA
     Dosage: 15 MG/KG INFUSION AT 1G/H
     Route: 050
  2. LIDOCAINE [Suspect]
     Indication: VENTRICULAR TACHYCARDIA
     Dosage: 2 MG/MIN INFUSION
     Route: 050
  3. AMIODARONE [Concomitant]
     Indication: VENTRICULAR TACHYCARDIA
     Route: 048
  4. CARVEDILOL [Concomitant]
     Route: 065
  5. SPIRONOLACTONE [Concomitant]
     Dosage: 25MG DAILY
     Route: 065
  6. FUROSEMIDE [Concomitant]
     Dosage: 40MG DAILY
     Route: 065
  7. IRBESARTAN [Concomitant]
     Dosage: 150MG DAILY
     Route: 065
  8. ATORVASTATIN [Concomitant]
     Dosage: 40MG DAILY
     Route: 065
  9. MAGNESIUM [Concomitant]
     Indication: SUPPLEMENTATION THERAPY
     Route: 065
  10. WARFARIN [Concomitant]
     Route: 065

REACTIONS (7)
  - Device pacing issue [Recovered/Resolved]
  - Bradycardia [Unknown]
  - Nystagmus [Unknown]
  - Somnolence [Unknown]
  - Hypotension [Unknown]
  - Confusional state [Unknown]
  - Paraesthesia oral [Unknown]
